FAERS Safety Report 6178017-9 (Version None)
Quarter: 2009Q2

REPORT INFORMATION
  Report Type: 
  Country: None (occurrence: None)
  Receive Date: 20090504
  Receipt Date: 20090424
  Transmission Date: 20091009
  Serious: Yes (Other)
  Sender: FDA-Public Use
  Company Number: US-ABBOTT-01P-163-0106904-00

PATIENT
  Sex: Male
  Weight: 3.243 kg

DRUGS (8)
  1. NORVIR [Suspect]
     Indication: DRUG EXPOSURE DURING PREGNANCY
  2. SUSTIVA [Suspect]
     Indication: DRUG EXPOSURE DURING PREGNANCY
  3. CRIXIVAN [Suspect]
     Indication: DRUG EXPOSURE DURING PREGNANCY
  4. BUPROPION HCL [Suspect]
     Indication: DRUG EXPOSURE DURING PREGNANCY
  5. VIRAMUNE [Suspect]
     Indication: DRUG EXPOSURE DURING PREGNANCY
  6. EPIVIR [Suspect]
     Indication: DRUG EXPOSURE DURING PREGNANCY
  7. ZERIT [Suspect]
     Indication: DRUG EXPOSURE DURING PREGNANCY
  8. VIRACEPT [Suspect]
     Indication: DRUG EXPOSURE DURING PREGNANCY

REACTIONS (2)
  - MECONIUM INCREASED [None]
  - RESPIRATORY DISORDER [None]
